FAERS Safety Report 12786096 (Version 1)
Quarter: 2016Q3

REPORT INFORMATION
  Report Type: Spontaneous
  Country: BR (occurrence: BR)
  Receive Date: 20160927
  Receipt Date: 20160927
  Transmission Date: 20161109
  Serious: Yes (Death, Hospitalization)
  Sender: FDA-Public Use
  Company Number: BR-PFIZER INC-2016374225

PATIENT
  Age: 59 Year
  Sex: Female

DRUGS (3)
  1. MORPHINE [Concomitant]
     Active Substance: MORPHINE
  2. CODEINE [Concomitant]
     Active Substance: CODEINE
  3. SUTENT [Suspect]
     Active Substance: SUNITINIB MALATE
     Indication: LUNG NEOPLASM MALIGNANT
     Dosage: 1 TABLET/DAY FOR 14 DAYS AND PAUSES 7
     Dates: start: 201603

REACTIONS (5)
  - Neoplasm progression [Fatal]
  - Infection [Unknown]
  - Pneumonia [Unknown]
  - Pleural effusion [Unknown]
  - Product use issue [Unknown]

NARRATIVE: CASE EVENT DATE: 2016
